FAERS Safety Report 18446898 (Version 5)
Quarter: 2024Q1

REPORT INFORMATION
  Report Type: Spontaneous
  Country: US (occurrence: US)
  Receive Date: 20201030
  Receipt Date: 20240228
  Transmission Date: 20240410
  Serious: Yes (Other)
  Sender: FDA-Public Use
  Company Number: US-PFIZER INC-2020421793

PATIENT
  Age: 58 Year
  Sex: Female
  Weight: 81.19 kg

DRUGS (1)
  1. XELJANZ XR [Suspect]
     Active Substance: TOFACITINIB CITRATE
     Dosage: 11 MG, 2X/DAY

REACTIONS (8)
  - Wrist fracture [Unknown]
  - Headache [Unknown]
  - Migraine [Unknown]
  - Pain in extremity [Unknown]
  - Skin disorder [Unknown]
  - General physical health deterioration [Unknown]
  - Pain [Unknown]
  - Off label use [Unknown]
